FAERS Safety Report 15188441 (Version 1)
Quarter: 2018Q3

REPORT INFORMATION
  Report Type: Spontaneous
  Country: GB (occurrence: GB)
  Receive Date: 20180724
  Receipt Date: 20180724
  Transmission Date: 20181010
  Serious: Yes (Other)
  Sender: FDA-Public Use
  Company Number: GB-TORRENT-00016915

PATIENT
  Age: 39 Year
  Sex: Female
  Weight: 62 kg

DRUGS (3)
  1. LAMOTRIGINE. [Suspect]
     Active Substance: LAMOTRIGINE
     Indication: MOOD SWINGS
     Dosage: VARIABLE UP TO 150MG TWICE DAILY. CURRENTLY ON 50MG DAILY.
     Route: 048
     Dates: start: 20150807
  2. MOCLOBEMIDE [Concomitant]
     Active Substance: MOCLOBEMIDE
     Indication: PRODUCT USED FOR UNKNOWN INDICATION
     Dosage: UNKNOWN
  3. DIAZEPAM. [Concomitant]
     Active Substance: DIAZEPAM
     Indication: PRODUCT USED FOR UNKNOWN INDICATION
     Dosage: UNKNOWN

REACTIONS (2)
  - Anxiety [Not Recovered/Not Resolved]
  - Withdrawal syndrome [Not Recovered/Not Resolved]

NARRATIVE: CASE EVENT DATE: 20180413
